FAERS Safety Report 6311881-9 (Version None)
Quarter: 2009Q3

REPORT INFORMATION
  Report Type: 
  Country: None (occurrence: None)
  Receive Date: 20090817
  Receipt Date: 20090804
  Transmission Date: 20100115
  Serious: Yes (Disabling, Other)
  Sender: FDA-Public Use
  Company Number: US-MERCK-0801USA05753

PATIENT
  Age: 43 Year
  Sex: Female
  Weight: 68 kg

DRUGS (3)
  1. FOSAMAX [Suspect]
     Indication: OSTEOPOROSIS
     Route: 048
  2. FOSAMAX [Suspect]
     Route: 048
     Dates: start: 20030101, end: 20060901
  3. FOSAMAX [Suspect]
     Route: 048
     Dates: start: 19980201, end: 20030101

REACTIONS (33)
  - ABSCESS [None]
  - ARTHRALGIA [None]
  - BONE DISORDER [None]
  - BONE LESION [None]
  - DENTAL CARIES [None]
  - DRUG INTOLERANCE [None]
  - DRUG TOXICITY [None]
  - DYSFUNCTIONAL UTERINE BLEEDING [None]
  - ENDODONTIC PROCEDURE [None]
  - FAILURE OF IMPLANT [None]
  - FEMUR FRACTURE [None]
  - FRACTURE [None]
  - GAIT DISTURBANCE [None]
  - GASTRIC DISORDER [None]
  - HYPERCALCIURIA [None]
  - INTERVERTEBRAL DISC PROTRUSION [None]
  - LOW TURNOVER OSTEOPATHY [None]
  - MENOPAUSE [None]
  - MUSCLE STRAIN [None]
  - NEPHROLITHIASIS [None]
  - NERVE INJURY [None]
  - ORAL INFECTION [None]
  - PAIN IN EXTREMITY [None]
  - POSTNASAL DRIP [None]
  - RESORPTION BONE INCREASED [None]
  - SINUSITIS [None]
  - SNORING [None]
  - SPONDYLOLISTHESIS [None]
  - STRESS FRACTURE [None]
  - TOOTH ABSCESS [None]
  - TOOTH DISORDER [None]
  - TOOTH FRACTURE [None]
  - TOOTH INFECTION [None]
